FAERS Safety Report 19191932 (Version 2)
Quarter: 2021Q2

REPORT INFORMATION
  Report Type: Spontaneous
  Country: CN (occurrence: CN)
  Receive Date: 20210428
  Receipt Date: 20210507
  Transmission Date: 20210717
  Serious: Yes (Other)
  Sender: FDA-Public Use
  Company Number: CN-ASTRAZENECA-2021A317086

PATIENT
  Age: 57 Year
  Sex: Female

DRUGS (5)
  1. TAGRISSO [Suspect]
     Active Substance: OSIMERTINIB
     Indication: LUNG ADENOCARCINOMA
     Route: 048
     Dates: start: 2021
  2. TAGRISSO [Suspect]
     Active Substance: OSIMERTINIB
     Indication: LUNG ADENOCARCINOMA
     Route: 048
     Dates: start: 2020
  3. TAGRISSO [Suspect]
     Active Substance: OSIMERTINIB
     Indication: LUNG ADENOCARCINOMA
     Dosage: BANGLADESH VERSION OF OSIMERTINIB FOR ABOUT 14 MONTHS
     Route: 048
     Dates: start: 2020
  4. IRESSA [Suspect]
     Active Substance: GEFITINIB
     Route: 048
  5. ACARBOSE. [Concomitant]
     Active Substance: ACARBOSE
     Indication: DIABETES MELLITUS

REACTIONS (3)
  - Drug resistance [Unknown]
  - Somnolence [Unknown]
  - Brain neoplasm [Unknown]

NARRATIVE: CASE EVENT DATE: 202104
